FAERS Safety Report 9929101 (Version 1)
Quarter: 2014Q1

REPORT INFORMATION
  Report Type: Spontaneous
  Country: DE (occurrence: None)
  Receive Date: 20140225
  Receipt Date: 20140225
  Transmission Date: 20141002
  Serious: Yes (Other)
  Sender: FDA-Public Use
  Company Number: FK201400631

PATIENT
  Age: 46 Year
  Sex: 0

DRUGS (3)
  1. FLUOROURACIL [Suspect]
     Indication: COLON CANCER
  2. LEUCOVORIN CALCIUM [Suspect]
     Indication: COLON CANCER
  3. OXALIPLATIN (MANUFACTURER UNKNOWN)(OXALIPLATIN)(OXALIPLATIN) [Suspect]
     Indication: COLON CANCER

REACTIONS (2)
  - Venoocclusive liver disease [None]
  - Nodular regenerative hyperplasia [None]
